FAERS Safety Report 11604777 (Version 1)
Quarter: 2015Q4

REPORT INFORMATION
  Report Type: Spontaneous
  Country: BR (occurrence: BR)
  Receive Date: 20151007
  Receipt Date: 20151007
  Transmission Date: 20160304
  Serious: Yes (Other)
  Sender: FDA-Public Use
  Company Number: BR-TORRENT-00003117

PATIENT
  Age: 19 Year
  Sex: Male
  Weight: 67 kg

DRUGS (2)
  1. NEULEPTIL [Concomitant]
     Active Substance: PERICIAZINE
     Indication: SLEEP TERROR
     Dosage: 10 DROPS DAILY/ ORAL
     Route: 048
     Dates: start: 1998
  2. RESPIDON [Suspect]
     Active Substance: RISPERIDONE
     Indication: CEREBRAL PALSY
     Dosage: ONCE DAILY/ ORAL
     Route: 048
     Dates: start: 2002

REACTIONS (5)
  - Atrophy of globe [Not Recovered/Not Resolved]
  - Eye irritation [Not Recovered/Not Resolved]
  - Photophobia [Not Recovered/Not Resolved]
  - Lacrimation increased [Not Recovered/Not Resolved]
  - Conjunctivitis [Recovered/Resolved]

NARRATIVE: CASE EVENT DATE: 2014
